FAERS Safety Report 6618472-0 (Version None)
Quarter: 2010Q1

REPORT INFORMATION
  Report Type: 
  Country: None (occurrence: None)
  Receive Date: 20100223
  Receipt Date: 20091102
  Transmission Date: 20100710
  Serious: No
  Sender: FDA-Public Use
  Company Number: 8054133

PATIENT
  Sex: Male
  Weight: 83.9 kg

DRUGS (2)
  1. CERTOLIZUMAB PEGOL [Suspect]
     Indication: CROHN'S DISEASE
     Dosage: 400 MG ^EVERY 6 OR 7 WEEKS^ SUBCUTANEOUS
     Route: 058
     Dates: start: 20091001
  2. PREDNISONE [Concomitant]

REACTIONS (2)
  - FATIGUE [None]
  - VISION BLURRED [None]
